FAERS Safety Report 7635705-2 (Version None)
Quarter: 2011Q3

REPORT INFORMATION
  Report Type: 
  Country: None (occurrence: None)
  Receive Date: 20110719
  Receipt Date: 20110708
  Transmission Date: 20111222
  Serious: Yes (Other)
  Sender: FDA-Public Use
  Company Number: 2011SP031981

PATIENT
  Sex: Male

DRUGS (2)
  1. TEMODAR [Suspect]
     Indication: NEOPLASM MALIGNANT
     Dates: start: 20080201, end: 20101201
  2. XELODA [Concomitant]

REACTIONS (3)
  - PNEUMONIA [None]
  - TUMOUR MARKER INCREASED [None]
  - MENINGEAL NEOPLASM [None]
